FAERS Safety Report 14942039 (Version 4)
Quarter: 2018Q3

REPORT INFORMATION
  Report Type: Spontaneous
  Country: US (occurrence: US)
  Receive Date: 20180527
  Receipt Date: 20180831
  Transmission Date: 20181010
  Serious: Yes (Other)
  Sender: FDA-Public Use
  Company Number: PHHY2018US005547

PATIENT
  Sex: Female

DRUGS (3)
  1. SYSTANE GELDROPS [Suspect]
     Active Substance: POLYETHYLENE GLYCOL 400\PROPYLENE GLYCOL
     Indication: EYE DISORDER
     Dosage: UNK
     Route: 047
     Dates: start: 20180520
  2. SYSTANE LUBRICANT [Suspect]
     Active Substance: POLYETHYLENE GLYCOL 400\PROPYLENE GLYCOL
     Indication: EYE DISORDER
     Dosage: UNK
     Route: 047
  3. SYSTANE LUBRICANT [Suspect]
     Active Substance: POLYETHYLENE GLYCOL 400\PROPYLENE GLYCOL
     Dosage: UNK
     Route: 047

REACTIONS (8)
  - Ocular hyperaemia [Recovered/Resolved]
  - Drug administration error [Unknown]
  - Product packaging issue [Unknown]
  - Eyelid oedema [Recovered/Resolved]
  - Product dropper issue [Unknown]
  - Eye pain [Recovered/Resolved]
  - Eye discharge [Recovered/Resolved]
  - Eye infection [Recovered/Resolved]

NARRATIVE: CASE EVENT DATE: 20180521
